FAERS Safety Report 9602171 (Version 1)
Quarter: 2013Q4

REPORT INFORMATION
  Report Type: Spontaneous
  Country: GB (occurrence: None)
  Receive Date: 20131003
  Receipt Date: 20131003
  Transmission Date: 20140711
  Serious: Yes (Disabling)
  Sender: FDA-Public Use
  Company Number: GB-ALKEM-000169

PATIENT
  Age: 93 Year
  Sex: Female
  Weight: 53 kg

DRUGS (11)
  1. CEPHALEXIN [Suspect]
     Indication: PRODUCT USED FOR UNKNOWN INDICATION
     Dates: start: 20130809
  2. ASPIRIN(ASPIRIN) [Concomitant]
  3. LOSARTAN(LOSARTAN) [Concomitant]
  4. BISOPROLOL(BISOPROLOL) [Concomitant]
  5. CLOPIDOGREL(CLOPIDOGREL) [Concomitant]
  6. OMEPRAZOLE(OMEPRAZOLE) [Concomitant]
  7. ANGEZE/MONOMAXSR(ANGEZE/MONOMAX SR)TRIMETHOPRIM(TRIMETHOPRIM) [Concomitant]
  8. BETAMETHASONE VALERATE(BETHAMETHASONE VALERATE)DOUBLEBASE(DOUBLEBASE) [Concomitant]
  9. CO-CODAMOL(CO-CODAMOL_ [Concomitant]
  10. SIMVASTATIN(SIMVASTATIN) [Concomitant]
  11. FUROSEMIDE(FUROSEMIDE) [Concomitant]

REACTIONS (3)
  - Joint stiffness [None]
  - Pain [None]
  - Arthralgia [None]
